FAERS Safety Report 5999761-X (Version None)
Quarter: 2008Q4

REPORT INFORMATION
  Report Type: 
  Country: None (occurrence: None)
  Receive Date: 20081215
  Receipt Date: 20081205
  Transmission Date: 20090506
  Serious: Yes (Other)
  Sender: FDA-Public Use
  Company Number: JP-WYE-H07128208

PATIENT
  Age: 76 Year
  Sex: Male

DRUGS (4)
  1. ANCARON [Suspect]
     Indication: VENTRICULAR TACHYCARDIA
  2. ANCARON [Suspect]
     Dates: end: 20080101
  3. SHINBIT [Concomitant]
     Indication: VENTRICULAR TACHYCARDIA
     Dosage: UNKNOWN
     Route: 042
  4. MEXILETINE HYDROCHLORIDE [Concomitant]
     Indication: VENTRICULAR TACHYCARDIA

REACTIONS (2)
  - INTERSTITIAL LUNG DISEASE [None]
  - PLEURAL EFFUSION [None]
